FAERS Safety Report 23688021 (Version 1)
Quarter: 2024Q1

REPORT INFORMATION
  Report Type: Report from Study
  Country: US (occurrence: US)
  Receive Date: 20240329
  Receipt Date: 20240329
  Transmission Date: 20240410
  Serious: Yes (Other)
  Sender: FDA-Public Use
  Company Number: US-ARGENX-2024-ARGX-US002057

PATIENT

DRUGS (1)
  1. VYVGART [Suspect]
     Active Substance: EFGARTIGIMOD ALFA-FCAB
     Indication: Myasthenia gravis
     Dosage: UNK
     Route: 042
     Dates: start: 20230501

REACTIONS (5)
  - Diverticulitis [Unknown]
  - Fall [Unknown]
  - Accident at work [Unknown]
  - Impaired work ability [Unknown]
  - Fatigue [Unknown]

NARRATIVE: CASE EVENT DATE: 20240223
